FAERS Safety Report 5745739-0 (Version None)
Quarter: 2008Q2

REPORT INFORMATION
  Report Type: 
  Country: None (occurrence: None)
  Receive Date: 20080521
  Receipt Date: 20080513
  Transmission Date: 20081010
  Serious: Yes (Other)
  Sender: FDA-Public Use
  Company Number: US-PFIZER INC-2008041254

PATIENT
  Sex: Female
  Weight: 70 kg

DRUGS (3)
  1. DETROL LA [Suspect]
     Indication: HYPERTONIC BLADDER
     Dates: start: 20080511, end: 20080511
  2. MILK OF MAGNESIA [Concomitant]
  3. THYROID TAB [Concomitant]

REACTIONS (9)
  - BURNING SENSATION [None]
  - DECREASED APPETITE [None]
  - EYELIDS PRURITUS [None]
  - INSOMNIA [None]
  - OEDEMA PERIPHERAL [None]
  - PAIN IN EXTREMITY [None]
  - PHARYNGEAL OEDEMA [None]
  - PRURITUS GENERALISED [None]
  - RASH GENERALISED [None]
